FAERS Safety Report 8048867-2 (Version None)
Quarter: 2012Q1

REPORT INFORMATION
  Report Type: 
  Country: None (occurrence: None)
  Receive Date: 20120117
  Receipt Date: 20120112
  Transmission Date: 20120608
  Serious: Yes (Hospitalization)
  Sender: FDA-Public Use
  Company Number: US-B.I. PHARMACEUTICALS,INC./RIDGEFIELD-2012-BP-00678BP

PATIENT
  Sex: Female

DRUGS (15)
  1. SYNTHROID [Concomitant]
     Indication: HYPOTHYROIDISM
     Route: 048
  2. LASIX [Concomitant]
     Indication: HYPERTENSION
     Route: 048
  3. VITAMIN E [Concomitant]
     Indication: SUPPLEMENTATION THERAPY
     Route: 048
  4. COQ10 [Concomitant]
     Indication: SUPPLEMENTATION THERAPY
     Route: 048
  5. IBUPROFEN [Concomitant]
     Indication: SCIATICA
     Dosage: 1600 MG
     Route: 048
  6. VITAMIN C [Concomitant]
     Indication: SUPPLEMENTATION THERAPY
     Route: 048
  7. GARLIC [Concomitant]
     Indication: SUPPLEMENTATION THERAPY
     Route: 048
  8. PRADAXA [Suspect]
     Indication: ATRIAL FIBRILLATION
     Dosage: 300 MG
     Route: 048
     Dates: start: 20110101
  9. MULTI-VITAMIN [Concomitant]
     Indication: SUPPLEMENTATION THERAPY
     Route: 048
  10. PERCOCET [Concomitant]
     Indication: SCIATICA
     Route: 048
  11. BEE POLLEN [Concomitant]
     Indication: SUPPLEMENTATION THERAPY
     Route: 048
  12. METOPROLOL TARTRATE [Concomitant]
     Indication: HYPERTENSION
     Route: 048
  13. VITAMIN A [Concomitant]
     Indication: SUPPLEMENTATION THERAPY
     Route: 048
  14. MAGNESIUM [Concomitant]
     Indication: SUPPLEMENTATION THERAPY
     Route: 048
  15. VITAMIN B-12 [Concomitant]
     Indication: SUPPLEMENTATION THERAPY
     Route: 048

REACTIONS (1)
  - HEART RATE DECREASED [None]
